FAERS Safety Report 6297793-8 (Version None)
Quarter: 2009Q3

REPORT INFORMATION
  Report Type: 
  Country: None (occurrence: None)
  Receive Date: 20090805
  Receipt Date: 20090724
  Transmission Date: 20100115
  Serious: Yes (Hospitalization)
  Sender: FDA-Public Use
  Company Number: JP-PFIZER INC-2009227088

PATIENT
  Age: 61 Year

DRUGS (1)
  1. CARDENALIN [Suspect]
     Dosage: 1 MG, 1X/DAY
     Route: 048
     Dates: start: 20081101

REACTIONS (1)
  - PHAEOCHROMOCYTOMA [None]
